FAERS Safety Report 9004816 (Version 1)
Quarter: 2013Q1

REPORT INFORMATION
  Report Type: Spontaneous
  Country: US (occurrence: None)
  Receive Date: 20130107
  Receipt Date: 20130107
  Transmission Date: 20140127
  Serious: Yes (Other)
  Sender: FDA-Public Use
  Company Number: None

PATIENT
  Age: 49 Year
  Sex: Female

DRUGS (1)
  1. WELLBUTRIN XL [Suspect]
     Indication: DEPRESSION
     Dates: start: 20121214, end: 20121219

REACTIONS (8)
  - Tremor [None]
  - Hypoaesthesia [None]
  - Paraesthesia [None]
  - Presyncope [None]
  - Flushing [None]
  - Tinnitus [None]
  - Hypertension [None]
  - Coordination abnormal [None]
